FAERS Safety Report 10061681 (Version 2)
Quarter: 2014Q2

REPORT INFORMATION
  Report Type: Spontaneous
  Country: US (occurrence: US)
  Receive Date: 20140407
  Receipt Date: 20140428
  Transmission Date: 20141212
  Serious: Yes (Other)
  Sender: FDA-Public Use
  Company Number: US-SA-2014SA041484

PATIENT
  Age: 70 Year
  Sex: Female
  Weight: 72.2 kg

DRUGS (1)
  1. ALLEGRA D [Suspect]
     Indication: RHINORRHOEA
     Route: 048
     Dates: start: 20140330, end: 20140331

REACTIONS (2)
  - Choking [Not Recovered/Not Resolved]
  - Myalgia [Recovered/Resolved]
